FAERS Safety Report 17866500 (Version 1)
Quarter: 2020Q2

REPORT INFORMATION
  Report Type: Spontaneous
  Country: JP (occurrence: JP)
  Receive Date: 20200605
  Receipt Date: 20200605
  Transmission Date: 20200714
  Serious: Yes (Other)
  Sender: FDA-Public Use
  Company Number: JP-GUERBET-JP-20200068

PATIENT
  Age: 6 Decade
  Sex: Female

DRUGS (1)
  1. OPTIRAY 320 [Suspect]
     Active Substance: IOVERSOL
     Indication: COMPUTERISED TOMOGRAM CORONARY ARTERY
     Route: 040
     Dates: start: 20200523, end: 20200523

REACTIONS (7)
  - Hyperventilation [Recovered/Resolved]
  - Contrast media allergy [Recovering/Resolving]
  - Fatigue [Recovered/Resolved]
  - Urticaria [Recovering/Resolving]
  - Hypoaesthesia [Recovered/Resolved]
  - Headache [Recovered/Resolved]
  - Head discomfort [Not Recovered/Not Resolved]

NARRATIVE: CASE EVENT DATE: 20200523
